FAERS Safety Report 9499743 (Version 1)
Quarter: 2013Q3

REPORT INFORMATION
  Report Type: Spontaneous
  Country: JP (occurrence: JP)
  Receive Date: 20130905
  Receipt Date: 20130905
  Transmission Date: 20140515
  Serious: No
  Sender: FDA-Public Use
  Company Number: JP-JNJFOC-20130816379

PATIENT
  Sex: Male

DRUGS (3)
  1. DUROTEP MT [Suspect]
     Indication: BACK PAIN
     Route: 062
  2. DUROTEP MT [Suspect]
     Indication: BACK PAIN
     Dosage: ALTERNATE APPLICATION OF 25 UG/HR AND??12.5 UG/HR
     Route: 062
  3. DUROTEP MT [Suspect]
     Indication: BACK PAIN
     Route: 062

REACTIONS (3)
  - Inappropriate schedule of drug administration [Unknown]
  - Somnolence [Unknown]
  - Inadequate analgesia [Unknown]
